FAERS Safety Report 18184885 (Version 1)
Quarter: 2020Q3

REPORT INFORMATION
  Report Type: Other
  Country: GB (occurrence: GB)
  Receive Date: 20200824
  Receipt Date: 20200824
  Transmission Date: 20201103
  Serious: Yes (Hospitalization)
  Sender: FDA-Public Use
  Company Number: GB-ORCHID HEALTHCARE-2088947

PATIENT
  Age: 32 Year
  Sex: Male

DRUGS (3)
  1. MODAFINIL. [Suspect]
     Active Substance: MODAFINIL
     Route: 065
  2. METHYLPHENIDATE. [Concomitant]
     Active Substance: METHYLPHENIDATE
     Route: 065
  3. D?MANNOSE [Concomitant]
     Route: 065

REACTIONS (11)
  - Loss of consciousness [Recovered/Resolved]
  - Brain oedema [Recovered/Resolved]
  - Overdose [Recovered/Resolved]
  - Vomiting [Recovered/Resolved]
  - Amnesia [Recovered/Resolved]
  - Ecchymosis [Recovered/Resolved]
  - Cognitive disorder [Recovered/Resolved]
  - Hyponatraemia [Recovered/Resolved]
  - Hypovolaemic shock [Recovered/Resolved]
  - Intracranial pressure increased [Recovered/Resolved]
  - Pneumonia aspiration [Recovered/Resolved]
